FAERS Safety Report 5662154-9 (Version None)
Quarter: 2008Q1

REPORT INFORMATION
  Report Type: 
  Country: None (occurrence: None)
  Receive Date: 20080310
  Receipt Date: 20080310
  Transmission Date: 20080703
  Serious: Yes (Hospitalization)
  Sender: FDA-Public Use
  Company Number: None

PATIENT
  Sex: Female
  Weight: 50.6 kg

DRUGS (7)
  1. FLUOROURACIL [Suspect]
     Dosage: 7832 MG
     Dates: end: 20080219
  2. BEVACIZUMAB (RHUMAB VEGF) [Suspect]
     Dosage: 530 MG
     Dates: end: 20080219
  3. CAMPTOSAR [Suspect]
     Dosage: 483 MG
     Dates: end: 20080219
  4. LEUCOVORIN CALCIUM [Suspect]
     Dosage: 1168 MG
     Dates: end: 20080219
  5. COMPAZINE [Concomitant]
  6. FENTANYL TRANSDERMAL SYSTEM [Concomitant]
  7. ZOLOFT [Concomitant]

REACTIONS (4)
  - DIARRHOEA [None]
  - DYSARTHRIA [None]
  - HALLUCINATION, AUDITORY [None]
  - WEIGHT DECREASED [None]
